FAERS Safety Report 12784034 (Version 1)
Quarter: 2016Q3

REPORT INFORMATION
  Report Type: Spontaneous
  Country: IT (occurrence: IT)
  Receive Date: 20160927
  Receipt Date: 20160927
  Transmission Date: 20161109
  Serious: Yes (Life-Threatening)
  Sender: FDA-Public Use
  Company Number: IT-ELI_LILLY_AND_COMPANY-IT201609008041

PATIENT
  Age: 30 Year
  Sex: Male

DRUGS (2)
  1. ZYPREXA [Suspect]
     Active Substance: OLANZAPINE
     Indication: PSYCHOTIC DISORDER
     Dosage: 10 MG, QD
     Route: 048
     Dates: end: 20160307
  2. ZYPREXA [Suspect]
     Active Substance: OLANZAPINE
     Dosage: 20 MG, WEEKLY (1/W)
     Route: 048
     Dates: start: 20160308, end: 20160319

REACTIONS (6)
  - Sopor [Recovered/Resolved]
  - Respiratory failure [Recovered/Resolved]
  - Hyperthermia [Recovered/Resolved]
  - Neuroleptic malignant syndrome [Recovered/Resolved]
  - Renal failure [Recovered/Resolved]
  - Blood creatine phosphokinase increased [Recovered/Resolved]

NARRATIVE: CASE EVENT DATE: 20160319
